FAERS Safety Report 15263308 (Version 1)
Quarter: 2018Q3

REPORT INFORMATION
  Report Type: Spontaneous
  Country: FR (occurrence: FR)
  Receive Date: 20180810
  Receipt Date: 20180810
  Transmission Date: 20181010
  Serious: Yes (Hospitalization, Other)
  Sender: FDA-Public Use
  Company Number: FR-AMGEN-FRASP2018108389

PATIENT
  Age: 42 Year
  Sex: Male
  Weight: 67 kg

DRUGS (11)
  1. LOVENOX [Concomitant]
     Active Substance: ENOXAPARIN SODIUM
     Dosage: 12000 IU, QD
     Route: 058
  2. NEULASTA [Suspect]
     Active Substance: PEGFILGRASTIM
     Indication: COLONY STIMULATING FACTOR PROPHYLAXIS
     Dosage: 6 MG, QD
     Route: 058
     Dates: start: 20171231, end: 20171231
  3. LEVOTHYROX [Concomitant]
     Active Substance: LEVOTHYROXINE
     Dosage: 75 MUG, QD
     Route: 048
  4. LANSOPRAZOLE. [Concomitant]
     Active Substance: LANSOPRAZOLE
     Dosage: 30 MG, QD
     Route: 048
  5. CARBOPLATINE [Suspect]
     Active Substance: CARBOPLATIN
     Indication: ADRENAL GLAND CANCER METASTATIC
     Dosage: 600 MG, Q4WK
     Route: 042
     Dates: start: 20170627
  6. LYSODREN [Concomitant]
     Active Substance: MITOTANE
     Dosage: 6 KBQ, QD
     Route: 048
  7. ONDANSETRON ACCORD [Concomitant]
     Active Substance: ONDANSETRON
     Dosage: 8 MG, UNK
     Route: 042
  8. METHYLPREDNISOLONE MYLAN [Suspect]
     Active Substance: METHYLPREDNISOLONE
     Indication: ADRENAL GLAND CANCER METASTATIC
     Dosage: 180 MG, Q4WK
     Route: 042
     Dates: start: 20170627
  9. ETOPOSIDE TEVA [Suspect]
     Active Substance: ETOPOSIDE
     Indication: ADRENAL GLAND CANCER METASTATIC
     Dosage: 510 MG, Q4WK
     Route: 042
     Dates: start: 20170627
  10. EMEND [Concomitant]
     Active Substance: APREPITANT
     Dosage: UNK (125 PLUS 80 MG)
     Route: 048
  11. HYDROCORTISONE. [Concomitant]
     Active Substance: HYDROCORTISONE
     Dosage: 100 MG, QD
     Route: 048

REACTIONS (3)
  - Hyperleukocytosis [Recovered/Resolved]
  - Hot flush [Recovered/Resolved]
  - Hyperthermia [Recovered/Resolved]

NARRATIVE: CASE EVENT DATE: 20180101
